FAERS Safety Report 8028794-7 (Version None)
Quarter: 2012Q1

REPORT INFORMATION
  Report Type: 
  Country: None (occurrence: None)
  Receive Date: 20120106
  Receipt Date: 20111229
  Transmission Date: 20120608
  Serious: Yes (Hospitalization)
  Sender: FDA-Public Use
  Company Number: AR-NOVOPROD-342321

PATIENT

DRUGS (7)
  1. VICTOZA [Suspect]
     Indication: TYPE 2 DIABETES MELLITUS
     Dosage: 0.6 MG, QD
     Route: 058
  2. ENALAPRIL MALEATE [Concomitant]
  3. INSULIN GLARGINE [Concomitant]
  4. INSULIN ASPART [Concomitant]
  5. ATENOLOL [Concomitant]
  6. LEVOTIROXIN [Concomitant]
  7. EZETIMIBE/SIMVASTATIN [Concomitant]

REACTIONS (3)
  - VOMITING [None]
  - NAUSEA [None]
  - ABDOMINAL PAIN UPPER [None]
